FAERS Safety Report 5117597-9 (Version None)
Quarter: 2006Q3

REPORT INFORMATION
  Report Type: 
  Country: None (occurrence: None)
  Receive Date: 20060929
  Receipt Date: 20060921
  Transmission Date: 20061208
  Serious: Yes (Hospitalization)
  Sender: FDA-Public Use
  Company Number: JP-ROCHE-464371

PATIENT
  Age: 90 Year
  Sex: Male

DRUGS (1)
  1. PANALDINE [Suspect]
     Indication: ANGINA PECTORIS
     Route: 048
     Dates: start: 20060106, end: 20060115

REACTIONS (1)
  - PYREXIA [None]
